FAERS Safety Report 15309841 (Version 1)
Quarter: 2018Q3

REPORT INFORMATION
  Report Type: Spontaneous
  Country: US (occurrence: US)
  Receive Date: 20180823
  Receipt Date: 20180823
  Transmission Date: 20181010
  Serious: No
  Sender: FDA-Public Use
  Company Number: US-MALLINCKRODT-T201703552

PATIENT
  Sex: Male

DRUGS (3)
  1. MORPHINE [Suspect]
     Active Substance: MORPHINE
     Dosage: SIX?60 MG PILLS A DAY; UPTO FOUR?15MG PILLS AS NEEDED
     Route: 065
  2. MORPHINE [Suspect]
     Active Substance: MORPHINE
     Dosage: 15MG UPTO 4 PILLS ONE DAY
     Route: 065
  3. MORPHINE [Suspect]
     Active Substance: MORPHINE
     Indication: BREAKTHROUGH PAIN
     Dosage: 200 MG PILLS DAILY
     Route: 065

REACTIONS (2)
  - Withdrawal syndrome [Unknown]
  - Diarrhoea [Not Recovered/Not Resolved]
